FAERS Safety Report 6389372-9 (Version None)
Quarter: 2009Q4

REPORT INFORMATION
  Report Type: 
  Country: None (occurrence: None)
  Receive Date: 20091006
  Receipt Date: 20090924
  Transmission Date: 20100525
  Serious: Yes (Other)
  Sender: FDA-Public Use
  Company Number: US-JNJFOC-20090907897

PATIENT
  Age: 7 Year
  Sex: Female

DRUGS (3)
  1. TYLENOL (CAPLET) [Suspect]
     Route: 048
  2. TYLENOL (CAPLET) [Suspect]
     Indication: IMMUNISATION
     Dosage: ^RECOMMENDED DOSE^ ONCE
     Route: 048
  3. VACCINES [Suspect]
     Indication: IMMUNISATION

REACTIONS (3)
  - DYSPNOEA [None]
  - HEADACHE [None]
  - TRANSMISSION OF AN INFECTIOUS AGENT VIA A MEDICINAL PRODUCT [None]
